FAERS Safety Report 6450746-9 (Version None)
Quarter: 2009Q4

REPORT INFORMATION
  Report Type: 
  Country: None (occurrence: None)
  Receive Date: 20091116
  Receipt Date: 20090819
  Transmission Date: 20100525
  Serious: Yes (Hospitalization)
  Sender: FDA-Public Use
  Company Number: WAES 0908USA03227

PATIENT
  Age: 40 Year
  Sex: Female
  Weight: 79.3795 kg

DRUGS (12)
  1. ISENTRESS [Suspect]
     Indication: HIV INFECTION
     Dosage: 400 MG/BID/PO
     Route: 048
     Dates: start: 20090617, end: 20090727
  2. ISENTRESS [Suspect]
     Indication: HIV INFECTION
     Dosage: 400 MG/BID/PO
     Route: 048
     Dates: start: 20090731, end: 20090804
  3. AMBIEN [Concomitant]
  4. CRESTOR [Concomitant]
  5. DEPAKOTE [Concomitant]
  6. KLONOPIN [Concomitant]
  7. NORVASC [Concomitant]
  8. REMERON [Concomitant]
  9. VIRAMUNE [Concomitant]
  10. ZIAGEN [Concomitant]
  11. ZYRTEC [Concomitant]
  12. LISINOPRIL [Concomitant]

REACTIONS (1)
  - DEPRESSION [None]
